FAERS Safety Report 18718317 (Version 2)
Quarter: 2021Q1

REPORT INFORMATION
  Report Type: Report from Study
  Country: DE (occurrence: DE)
  Receive Date: 20210108
  Receipt Date: 20210329
  Transmission Date: 20210419
  Serious: Yes (Other)
  Sender: FDA-Public Use
  Company Number: DE-GILEAD-2021-0511810

PATIENT

DRUGS (5)
  1. SOFOSBUVIR [Suspect]
     Active Substance: SOFOSBUVIR
     Indication: PROPHYLAXIS
     Dosage: 400 MG
     Route: 048
  2. MYCOPHENOLATE [Concomitant]
     Active Substance: MYCOPHENOLIC ACID
  3. BASILIXIMAB [Concomitant]
     Active Substance: BASILIXIMAB
  4. DACLATASVIR. [Concomitant]
     Active Substance: DACLATASVIR
     Indication: PROPHYLAXIS
     Dosage: 60 MG
     Route: 048
  5. TACROLIMUS. [Concomitant]
     Active Substance: TACROLIMUS

REACTIONS (1)
  - Renal tubular necrosis [Unknown]
